FAERS Safety Report 7522090-X (Version None)
Quarter: 2011Q2

REPORT INFORMATION
  Report Type: 
  Country: None (occurrence: None)
  Receive Date: 20110603
  Receipt Date: 20110524
  Transmission Date: 20111010
  Serious: Yes (Hospitalization)
  Sender: FDA-Public Use
  Company Number: JP-PFIZER INC-2011118945

PATIENT
  Age: 86 Year
  Sex: Male

DRUGS (1)
  1. MIGLITOL [Suspect]
     Indication: DIABETES MELLITUS
     Dosage: 50 MG, 3X/DAY
     Route: 048
     Dates: start: 20110111, end: 20110131

REACTIONS (2)
  - PNEUMATOSIS INTESTINALIS [None]
  - PORTAL VENOUS GAS [None]
